FAERS Safety Report 8890293 (Version 2)
Quarter: 2012Q4

REPORT INFORMATION
  Report Type: 
  Country: US (occurrence: US)
  Receive Date: 20121107
  Receipt Date: 20121217
  Transmission Date: 20130627
  Serious: Yes (Other)
  Sender: FDA-Public Use
  Company Number: US-ELI_LILLY_AND_COMPANY-US201210009071

PATIENT
  Sex: Female

DRUGS (14)
  1. CYMBALTA [Suspect]
     Indication: FIBROMYALGIA
     Dosage: 60 mg, qd
     Route: 048
  2. CLONAZEPAM [Concomitant]
     Dosage: 1 mg, each evening
     Route: 048
     Dates: start: 20120913
  3. SUMATRIPTAN SUCCINATE [Concomitant]
     Indication: MIGRAINE
     Dosage: 50 mg, prn
     Route: 048
     Dates: start: 20120913
  4. ACIPHEX [Concomitant]
     Dosage: 20 mg, qd
     Route: 048
     Dates: start: 20120821
  5. TRICOR [Concomitant]
     Dosage: 145 mg, qd
     Route: 048
     Dates: start: 20111129
  6. LIDODERM [Concomitant]
     Dosage: UNK, qd
     Dates: start: 20111006
  7. LORTAB [Concomitant]
     Dosage: 500 mg, prn
     Route: 048
     Dates: start: 20111006
  8. ROPINIROLE HYDROCHLORIDE [Concomitant]
     Dosage: 0.25 mg, each evening
     Route: 048
     Dates: start: 20111006
  9. MULTIPLE VITAMINS [Concomitant]
     Dosage: UNK, qd
     Route: 048
  10. B COMPLEX [Concomitant]
     Dosage: 1 DF, qd
     Route: 048
  11. CALTRATE WITH VITAMIN D [Concomitant]
     Dosage: 1 DF, qd
     Route: 048
  12. VITAMIN E [Concomitant]
     Dosage: 400 IU, qd
     Route: 048
  13. MAGNESIUM GLUCONATE [Concomitant]
     Dosage: 250 mg, qd
     Route: 048
  14. BIOTIN [Concomitant]
     Dosage: 5000 ug, qd
     Route: 048

REACTIONS (14)
  - Neck injury [Unknown]
  - Intracardiac thrombus [Unknown]
  - Meniscus operation [Unknown]
  - Tendon sheath incision [Unknown]
  - Tendon sheath incision [Unknown]
  - Nerve root injury lumbar [Unknown]
  - Urethral polyp [Unknown]
  - Road traffic accident [Unknown]
  - Pain [Unknown]
  - Abdominal hernia [Not Recovered/Not Resolved]
  - Spinal column injury [Unknown]
  - Off label use [Recovered/Resolved]
  - Hyperhidrosis [Unknown]
  - Insomnia [Unknown]
